FAERS Safety Report 4970225-5 (Version None)
Quarter: 2006Q2

REPORT INFORMATION
  Report Type: 
  Country: None (occurrence: None)
  Receive Date: 20060406
  Receipt Date: 20060321
  Transmission Date: 20061013
  Serious: Yes (Hospitalization, Disabling)
  Sender: FDA-Public Use
  Company Number: US200603005425

PATIENT
  Age: 49 Year
  Sex: Male
  Weight: 113.4 kg

DRUGS (4)
  1. ZYPREXA [Suspect]
     Indication: PSYCHOTIC DISORDER
     Dates: start: 20010101, end: 20040101
  2. SEROQUEL [Concomitant]
  3. KLONOPIN [Concomitant]
  4. VALIUM /NET/ (DIAZEPAM) [Concomitant]

REACTIONS (4)
  - BLOOD PRESSURE INCREASED [None]
  - LETHARGY [None]
  - MENTAL DISORDER [None]
  - WEIGHT INCREASED [None]
